FAERS Safety Report 9127674 (Version 6)
Quarter: 2014Q2

REPORT INFORMATION
  Report Type: Report from Study
  Country: FR (occurrence: FR)
  Receive Date: 20130125
  Receipt Date: 20140602
  Transmission Date: 20141212
  Serious: Yes (Death, Life-Threatening, Hospitalization, Other)
  Sender: FDA-Public Use
  Company Number: FR-SANOFI-AVENTIS-2012SA091902

PATIENT
  Age: 55 Year
  Sex: Female

DRUGS (23)
  1. AFLIBERCEPT [Suspect]
     Indication: COLORECTAL CANCER METASTATIC
     Dosage: LENGTH OF INFUSION 60 MINUTES
     Route: 042
     Dates: start: 20121123, end: 20121123
  2. AFLIBERCEPT [Suspect]
     Indication: COLORECTAL CANCER METASTATIC
     Dosage: LENGTH OF INFUSION 60 MINUTES
     Route: 042
     Dates: start: 20121206, end: 20121206
  3. 5-FU [Suspect]
     Indication: COLORECTAL CANCER METASTATIC
     Route: 040
     Dates: start: 20121123, end: 20121123
  4. 5-FU [Suspect]
     Indication: COLORECTAL CANCER METASTATIC
     Route: 042
     Dates: start: 20121123, end: 20121123
  5. 5-FU [Suspect]
     Indication: COLORECTAL CANCER METASTATIC
     Route: 040
     Dates: start: 20121206, end: 20121206
  6. 5-FU [Suspect]
     Indication: COLORECTAL CANCER METASTATIC
     Route: 042
     Dates: start: 20121206, end: 20121206
  7. IRINOTECAN [Suspect]
     Indication: COLORECTAL CANCER METASTATIC
     Route: 042
     Dates: start: 20121123, end: 20121123
  8. IRINOTECAN [Suspect]
     Indication: COLORECTAL CANCER METASTATIC
     Route: 042
     Dates: start: 20121206, end: 20121206
  9. LEUCOVORIN [Suspect]
     Indication: COLORECTAL CANCER METASTATIC
     Route: 042
     Dates: start: 20121123, end: 20121123
  10. LEUCOVORIN [Suspect]
     Indication: COLORECTAL CANCER METASTATIC
     Route: 042
     Dates: start: 20121206, end: 20121206
  11. ZOPHREN [Concomitant]
     Route: 065
     Dates: start: 20121027
  12. ZOPHREN [Concomitant]
     Route: 065
     Dates: start: 20121123, end: 20121123
  13. ZOPHREN [Concomitant]
     Route: 065
     Dates: start: 20121206, end: 20121206
  14. PERFALGAN [Concomitant]
     Route: 065
     Dates: start: 20121106
  15. FENTANYL [Concomitant]
     Route: 065
     Dates: start: 20121115, end: 20121202
  16. FENTANYL [Concomitant]
     Route: 065
     Dates: start: 20121203
  17. ORACILLINE [Concomitant]
     Route: 065
     Dates: start: 201104
  18. EUPANTOL [Concomitant]
     Route: 065
     Dates: start: 20121123
  19. STILNOX [Concomitant]
     Route: 065
     Dates: start: 20121203
  20. ACTIQ [Concomitant]
     Route: 065
     Dates: start: 20121206
  21. ATROPINE [Concomitant]
     Route: 065
     Dates: start: 20121123, end: 20121123
  22. ATROPINE [Concomitant]
     Route: 065
     Dates: start: 20121206, end: 20121206
  23. SOLUMEDROL [Concomitant]
     Dates: start: 201212

REACTIONS (4)
  - Septic shock [Fatal]
  - Febrile neutropenia [Not Recovered/Not Resolved]
  - Pulmonary oedema [Not Recovered/Not Resolved]
  - Hyperglycaemia [Not Recovered/Not Resolved]
